FAERS Safety Report 17911895 (Version 2)
Quarter: 2020Q2

REPORT INFORMATION
  Report Type: Spontaneous
  Country: ES (occurrence: ES)
  Receive Date: 20200618
  Receipt Date: 20200624
  Transmission Date: 20200714
  Serious: Yes (Disabling, Other)
  Sender: FDA-Public Use
  Company Number: ES-ACCORD-185929

PATIENT
  Age: 43 Year
  Sex: Male

DRUGS (3)
  1. MINOXIDIL. [Concomitant]
     Active Substance: MINOXIDIL
     Indication: ANDROGENETIC ALOPECIA
  2. FINASTERIDE. [Suspect]
     Active Substance: FINASTERIDE
     Indication: ANDROGENETIC ALOPECIA
     Route: 048
     Dates: start: 201509, end: 2015
  3. FINASTERIDE NORMON [Suspect]
     Active Substance: FINASTERIDE
     Indication: ANDROGENETIC ALOPECIA
     Dosage: STRENGTH: 1 MG
     Route: 048
     Dates: start: 2015, end: 202001

REACTIONS (2)
  - Meibomian gland dysfunction [Recovered/Resolved with Sequelae]
  - Allodynia [Not Recovered/Not Resolved]

NARRATIVE: CASE EVENT DATE: 201511
